FAERS Safety Report 11682713 (Version 2)
Quarter: 2015Q4

REPORT INFORMATION
  Report Type: Spontaneous
  Country: JP (occurrence: JP)
  Receive Date: 20151029
  Receipt Date: 20151126
  Transmission Date: 20160304
  Serious: Yes (Hospitalization, Other)
  Sender: FDA-Public Use
  Company Number: JP-BRISTOL-MYERS SQUIBB COMPANY-BMS-2015-073485

PATIENT
  Age: 66 Year
  Sex: Male

DRUGS (6)
  1. OPDIVO [Suspect]
     Active Substance: NIVOLUMAB
     Dosage: 140 MG, UNK
     Route: 041
     Dates: start: 2015, end: 2015
  2. OPDIVO [Suspect]
     Active Substance: NIVOLUMAB
     Dosage: UNK
     Route: 042
     Dates: start: 201511, end: 201511
  3. OPDIVO [Suspect]
     Active Substance: NIVOLUMAB
     Dosage: UNK
     Route: 041
     Dates: start: 2015, end: 2015
  4. OPDIVO [Suspect]
     Active Substance: NIVOLUMAB
     Dosage: 140 MG, UNK
     Route: 041
     Dates: start: 2015, end: 2015
  5. OPDIVO [Suspect]
     Active Substance: NIVOLUMAB
     Dosage: 140 MG, UNK
     Route: 041
     Dates: start: 20150925, end: 20150925
  6. OPDIVO [Suspect]
     Active Substance: NIVOLUMAB
     Indication: MALIGNANT MELANOMA
     Dosage: UNK
     Route: 041
     Dates: start: 20150701, end: 20150701

REACTIONS (1)
  - Pneumonia bacterial [Recovered/Resolved]

NARRATIVE: CASE EVENT DATE: 20151006
